FAERS Safety Report 25727053 (Version 1)
Quarter: 2025Q3

REPORT INFORMATION
  Report Type: Spontaneous
  Country: US (occurrence: None)
  Receive Date: 20250825
  Receipt Date: 20250825
  Transmission Date: 20251021
  Serious: Yes (Hospitalization)
  Sender: FDA-CTU
  Company Number: None

PATIENT
  Age: 82 Year
  Sex: Female

DRUGS (2)
  1. TOBRAMYCIN [Suspect]
     Active Substance: TOBRAMYCIN
  2. VANCOMYCIN [Suspect]
     Active Substance: VANCOMYCIN

REACTIONS (6)
  - Fall [None]
  - Injury [None]
  - Sepsis [None]
  - Hip surgery [None]
  - Creatinine renal clearance abnormal [None]
  - Dialysis [None]

NARRATIVE: CASE EVENT DATE: 20221214
